FAERS Safety Report 9671524 (Version 1)
Quarter: 2013Q4

REPORT INFORMATION
  Report Type: Spontaneous
  Country: US (occurrence: None)
  Receive Date: 20131105
  Receipt Date: 20131105
  Transmission Date: 20140711
  Serious: Yes (Death)
  Sender: FDA-Public Use
  Company Number: None

PATIENT
  Age: 44 Year
  Sex: Female
  Weight: 60.78 kg

DRUGS (1)
  1. TRAZADONE [Suspect]
     Indication: INSOMNIA
     Dosage: 1-2 TABLETS AT BEDTIME
     Route: 048
     Dates: start: 20110624, end: 20110627

REACTIONS (2)
  - Gun shot wound [None]
  - Head injury [None]
